FAERS Safety Report 7283360-6 (Version None)
Quarter: 2011Q1

REPORT INFORMATION
  Report Type: 
  Country: None (occurrence: None)
  Receive Date: 20110209
  Receipt Date: 20101118
  Transmission Date: 20110831
  Serious: Yes (Hospitalization, Congenital Anomaly)
  Sender: FDA-Public Use
  Company Number: A0680621A

PATIENT
  Sex: Male

DRUGS (7)
  1. ACIPHEX [Concomitant]
     Route: 064
  2. ZOFRAN [Concomitant]
     Route: 064
  3. PRENATAL VITAMINS [Concomitant]
     Route: 064
  4. PAROXETINE HYDROCHLORIDE [Suspect]
     Indication: DEPRESSION
     Dosage: 40MG PER DAY
     Route: 064
     Dates: start: 20040223, end: 20050928
  5. ELAVIL [Concomitant]
     Route: 064
  6. PAXIL [Suspect]
     Indication: DEPRESSION
     Dosage: 40MG PER DAY
     Route: 064
  7. SINGULAIR [Concomitant]
     Route: 064

REACTIONS (2)
  - CONGENITAL ANOMALY [None]
  - DRUG EXPOSURE DURING PREGNANCY [None]
